FAERS Safety Report 6650143-7 (Version None)
Quarter: 2010Q1

REPORT INFORMATION
  Report Type: 
  Country: None (occurrence: None)
  Receive Date: 20100325
  Receipt Date: 20090512
  Transmission Date: 20100710
  Serious: No
  Sender: FDA-Public Use
  Company Number: US-KINGPHARMUSA00001-K200900570

PATIENT
  Sex: Female

DRUGS (3)
  1. ALTACE [Suspect]
     Indication: BLOOD PRESSURE
     Dosage: 5 MG, QD
     Route: 048
     Dates: start: 19900101, end: 20070101
  2. ASPIRIN [Concomitant]
  3. ALLERGY MEDICATION [Concomitant]
     Indication: HYPERSENSITIVITY

REACTIONS (2)
  - BLOOD PRESSURE INCREASED [None]
  - DRUG INEFFECTIVE [None]
